FAERS Safety Report 7202699-3 (Version None)
Quarter: 2010Q4

REPORT INFORMATION
  Report Type: 
  Country: None (occurrence: None)
  Receive Date: 20101220
  Receipt Date: 20101207
  Transmission Date: 20110411
  Serious: Yes (Hospitalization)
  Sender: FDA-Public Use
  Company Number: 011175

PATIENT
  Sex: Male
  Weight: 66 kg

DRUGS (13)
  1. CERTOLIZUMAB PEGOL (CERTOLIZUMAB PEGOL) [Suspect]
     Indication: RHEUMATOID ARTHRITIS
     Dosage: 200 MG 1X/2 WEEKS SUBCUTANEOUS
     Route: 058
     Dates: start: 20091123
  2. SALAZOPYRINE [Concomitant]
  3. METYPRED [Concomitant]
  4. UNKNOWN [Concomitant]
  5. METOPROLOL TARTRATE [Concomitant]
  6. TOREM [Concomitant]
  7. SIMVASTATIN [Concomitant]
  8. SPIRONOLACTONE [Concomitant]
  9. RAMIPRIL [Concomitant]
  10. ACETYLSALICYLIC ACID [Concomitant]
  11. KALINOR [Concomitant]
  12. CARBIMAZOLE [Concomitant]
  13. ALLOPURINOL [Concomitant]

REACTIONS (3)
  - BASAL CELL CARCINOMA [None]
  - CEREBROVASCULAR ACCIDENT [None]
  - TRANSIENT ISCHAEMIC ATTACK [None]
